FAERS Safety Report 9201155 (Version 2)
Quarter: 2013Q3

REPORT INFORMATION
  Report Type: Report from Study
  Country: BR (occurrence: BR)
  Receive Date: 20130401
  Receipt Date: 20130828
  Transmission Date: 20140515
  Serious: Yes (Other)
  Sender: FDA-Public Use
  Company Number: PHHY2013BR016361

PATIENT
  Sex: Female
  Weight: 67 kg

DRUGS (9)
  1. SANDOSTATIN LAR [Suspect]
     Indication: PITUITARY TUMOUR
     Dosage: 30 MG, PER MONTH
     Route: 030
     Dates: start: 201001, end: 201303
  2. SANDOSTATIN LAR [Suspect]
     Dosage: 30 MG, UNK
     Route: 030
     Dates: start: 201307
  3. CABERGOLINA [Concomitant]
     Indication: PITUITARY TUMOUR
     Dosage: 2 DF, A WEEK
     Route: 048
     Dates: start: 201001
  4. ROSUVASTATINE [Concomitant]
     Indication: BLOOD CHOLESTEROL
     Dosage: 1 DF, AT NIGHT
     Route: 048
     Dates: start: 2010
  5. ROSUVASTATINE [Concomitant]
     Dosage: UNK
     Route: 048
     Dates: start: 2012
  6. ESPRAN [Concomitant]
     Indication: MOOD ALTERED
     Dosage: UNK UKN, UNK
     Route: 048
     Dates: start: 2012
  7. METFORMIN [Concomitant]
     Indication: DIABETES MELLITUS
     Dosage: 1 DF, A DAY
     Route: 048
     Dates: start: 201001, end: 201302
  8. METFORMIN [Concomitant]
     Dosage: UNK UKN, UNK
     Route: 048
  9. ATENOLOL [Concomitant]
     Dosage: UNK UKN, UNK

REACTIONS (4)
  - Osteoporosis [Unknown]
  - Blood pressure decreased [Recovered/Resolved]
  - Blood pressure increased [Recovered/Resolved]
  - Asthenia [Recovering/Resolving]
